FAERS Safety Report 7669390-0 (Version None)
Quarter: 2011Q3

REPORT INFORMATION
  Report Type: 
  Country: None (occurrence: None)
  Receive Date: 20110808
  Receipt Date: 20110728
  Transmission Date: 20111222
  Serious: Yes (Death)
  Sender: FDA-Public Use
  Company Number: US-ROCHE-793399

PATIENT
  Age: 21 Year
  Sex: Male

DRUGS (3)
  1. VALIUM [Suspect]
     Route: 065
  2. METHADONE HYDROCHLORIDE [Suspect]
     Route: 065
  3. CARISOPRODOL [Suspect]
     Route: 065

REACTIONS (1)
  - TOXICITY TO VARIOUS AGENTS [None]
